FAERS Safety Report 5250502-3 (Version None)
Quarter: 2007Q1

REPORT INFORMATION
  Report Type: 
  Country: None (occurrence: None)
  Receive Date: 20070228
  Receipt Date: 20070205
  Transmission Date: 20070707
  Serious: Yes (Death, Hospitalization)
  Sender: FDA-Public Use
  Company Number: ESWYE564907FEB07

PATIENT
  Sex: Female

DRUGS (7)
  1. ENBREL [Suspect]
     Indication: RHEUMATOID ARTHRITIS
     Route: 058
     Dates: start: 20050606, end: 20061126
  2. DEZACOR [Concomitant]
     Dates: start: 20000101, end: 20061126
  3. HIDROFEROL [Concomitant]
     Dosage: UNKNOWN
     Dates: end: 20061126
  4. TERIPARATIDE [Concomitant]
     Dosage: UNKNOWN
     Dates: start: 20060515, end: 20061126
  5. CALCIUM SANDOZ FORTE D [Concomitant]
     Dosage: UNKNOWN
     Dates: end: 20061126
  6. METHOTREXATE [Concomitant]
     Indication: RHEUMATOID ARTHRITIS
     Dates: start: 20020101, end: 20061126
  7. INACID [Concomitant]
     Dosage: UNKNOWN
     Dates: start: 20000101, end: 20061126

REACTIONS (4)
  - PANCYTOPENIA [None]
  - PSEUDOMONAS INFECTION [None]
  - RENAL FAILURE [None]
  - RESPIRATORY FAILURE [None]
